FAERS Safety Report 10972371 (Version 2)
Quarter: 2015Q2

REPORT INFORMATION
  Report Type: Spontaneous
  Country: US (occurrence: US)
  Receive Date: 20150331
  Receipt Date: 20150525
  Transmission Date: 20150821
  Serious: No
  Sender: FDA-Public Use
  Company Number: US-JNJFOC-20130714247

PATIENT
  Sex: Male

DRUGS (2)
  1. RISPERDAL [Suspect]
     Active Substance: RISPERIDONE
     Indication: OPPOSITIONAL DEFIANT DISORDER
     Route: 048
  2. ZYPREXA [Suspect]
     Active Substance: OLANZAPINE
     Indication: OPPOSITIONAL DEFIANT DISORDER
     Route: 065

REACTIONS (4)
  - Emotional distress [Unknown]
  - Weight increased [Not Recovered/Not Resolved]
  - Galactorrhoea [Unknown]
  - Gynaecomastia [Unknown]
